FAERS Safety Report 6587336-3 (Version None)
Quarter: 2010Q1

REPORT INFORMATION
  Report Type: 
  Country: None (occurrence: None)
  Receive Date: 20100217
  Receipt Date: 20090514
  Transmission Date: 20100710
  Serious: No
  Sender: FDA-Public Use
  Company Number: US-ALLERGAN-0906702US

PATIENT
  Sex: Female

DRUGS (2)
  1. BOTOX [Suspect]
     Indication: TORTICOLLIS
     Dosage: UNK, SINGLE
     Route: 030
  2. BOTOX [Suspect]
     Indication: BLEPHAROSPASM

REACTIONS (2)
  - EYELID PTOSIS [None]
  - INFLUENZA LIKE ILLNESS [None]
